FAERS Safety Report 13768961 (Version 1)
Quarter: 2017Q3

REPORT INFORMATION
  Report Type: Spontaneous
  Country: US (occurrence: US)
  Receive Date: 20170719
  Receipt Date: 20170719
  Transmission Date: 20171127
  Serious: No
  Sender: FDA-Public Use
  Company Number: US-009507513-1707USA006121

PATIENT
  Age: 64 Year
  Sex: Female

DRUGS (2)
  1. JANUVIA [Suspect]
     Active Substance: SITAGLIPTIN PHOSPHATE
     Dosage: 100 MG (1 TABLET) DAILY
     Route: 048
     Dates: start: 2015
  2. METFORMIN [Concomitant]
     Active Substance: METFORMIN HYDROCHLORIDE
     Dosage: UNK

REACTIONS (5)
  - Somnolence [Unknown]
  - Feeling abnormal [Unknown]
  - Drug dose omission [Unknown]
  - Diarrhoea [Unknown]
  - Head discomfort [Unknown]

NARRATIVE: CASE EVENT DATE: 20170706
